FAERS Safety Report 4733721-1 (Version None)
Quarter: 2005Q3

REPORT INFORMATION
  Report Type: 
  Country: None (occurrence: None)
  Receive Date: 20050721
  Receipt Date: 20050512
  Transmission Date: 20060218
  Serious: No
  Sender: FDA-Public Use
  Company Number: 2005SP000795

PATIENT
  Age: 71 Year
  Sex: Female
  Weight: 58.0604 kg

DRUGS (2)
  1. LUNESTA [Suspect]
     Indication: INSOMNIA
     Dosage: 3 MG; HS; ORAL
     Route: 048
     Dates: start: 20050101, end: 20050101
  2. ANTIHYPERTENSIVES [Concomitant]

REACTIONS (2)
  - DRUG EFFECT DECREASED [None]
  - INSOMNIA [None]
